FAERS Safety Report 14947169 (Version 1)
Quarter: 2018Q2

REPORT INFORMATION
  Report Type: Spontaneous
  Country: US (occurrence: US)
  Receive Date: 20180529
  Receipt Date: 20180529
  Transmission Date: 20180711
  Serious: Yes (Other)
  Sender: FDA-Public Use
  Company Number: US-SILVERGATE PHARMACEUTICALS, INC.-2018SIL00021

PATIENT
  Age: 60 Year
  Sex: Female

DRUGS (8)
  1. AMIODARONE [Concomitant]
     Active Substance: AMIODARONE
     Route: 065
  2. LORAZEPAM. [Concomitant]
     Active Substance: LORAZEPAM
     Route: 065
  3. CYTARABINE. [Concomitant]
     Active Substance: CYTARABINE
     Dosage: 1500 MG/M2, 2X/DAY INFUSED OVER 2 HOURS FOR FOUR DOSES
     Route: 042
  4. IOHEXOL [Suspect]
     Active Substance: IOHEXOL
     Dosage: 35000 MG, ONCE
     Route: 042
  5. LISINOPRIL. [Suspect]
     Active Substance: LISINOPRIL
     Route: 065
  6. VORICONAZOLE. [Concomitant]
     Active Substance: VORICONAZOLE
     Route: 065
  7. METHOTREXATE. [Suspect]
     Active Substance: METHOTREXATE
     Dosage: 1000 MG/M2, OVER 24 HOURS
     Route: 042
  8. METOPROLOL. [Concomitant]
     Active Substance: METOPROLOL
     Route: 065

REACTIONS (4)
  - Drug interaction [Recovered/Resolved]
  - Toxicity to various agents [Recovered/Resolved]
  - Nephropathy toxic [Recovered/Resolved]
  - Pancytopenia [Recovered/Resolved]
